FAERS Safety Report 20805490 (Version 2)
Quarter: 2022Q3

REPORT INFORMATION
  Report Type: Spontaneous
  Country: US (occurrence: US)
  Receive Date: 20220510
  Receipt Date: 20220719
  Transmission Date: 20221027
  Serious: Yes (Death, Other)
  Sender: FDA-Public Use
  Company Number: US-SUN PHARMACEUTICAL INDUSTRIES LTD-2022R1-335753

PATIENT
  Age: 77 Year
  Sex: Male

DRUGS (1)
  1. YONSA [Suspect]
     Active Substance: ABIRATERONE ACETATE
     Indication: Product used for unknown indication
     Dosage: 8 TABLETS(1000MG) BY MOUTH ONCE DAILY.
     Route: 048
     Dates: start: 20220328, end: 20220424

REACTIONS (1)
  - Death [Fatal]

NARRATIVE: CASE EVENT DATE: 20220424
